FAERS Safety Report 8320490-1 (Version None)
Quarter: 2012Q2

REPORT INFORMATION
  Report Type: 
  Country: None (occurrence: None)
  Receive Date: 20120427
  Receipt Date: 20120427
  Transmission Date: 20120825
  Serious: Yes (Hospitalization)
  Sender: FDA-Public Use
  Company Number: None

PATIENT
  Age: 84 Year
  Sex: Female

DRUGS (1)
  1. GABAPENTIN [Suspect]
     Dosage: 300MG
     Route: 048

REACTIONS (4)
  - LETHARGY [None]
  - UNRESPONSIVE TO STIMULI [None]
  - MENTAL STATUS CHANGES [None]
  - HEART RATE DECREASED [None]
